FAERS Safety Report 15830381 (Version 1)
Quarter: 2019Q1

REPORT INFORMATION
  Report Type: Spontaneous
  Country: US (occurrence: US)
  Receive Date: 20190115
  Receipt Date: 20190115
  Transmission Date: 20190417
  Serious: No
  Sender: FDA-Public Use
  Company Number: US-REGENERON PHARMACEUTICALS, INC.-2018-44571

PATIENT

DRUGS (3)
  1. EYLEA [Suspect]
     Active Substance: AFLIBERCEPT
     Indication: MACULAR OEDEMA
     Dosage: UNK, EVERY 4 - 6 WEEKS, LAST DOSE PRIOR EVENT (PARTIALLY ADMINISTERED)
     Route: 031
     Dates: start: 20181108, end: 20181108
  2. EYLEA [Suspect]
     Active Substance: AFLIBERCEPT
     Dosage: UNK, EVERY 4 - 6 WEEKS, LAST DOSE (PARTIALLY ADMINISTERED TO COMPLETE THE PREVIOUS DOSE)
     Route: 031
     Dates: start: 20181108, end: 20181108
  3. EYLEA [Suspect]
     Active Substance: AFLIBERCEPT
     Indication: RETINAL VEIN OCCLUSION
     Dosage: UNK, EVERY 4 - 6 WEEKS
     Route: 031

REACTIONS (1)
  - Product administration error [Unknown]

NARRATIVE: CASE EVENT DATE: 20181108
